FAERS Safety Report 14321718 (Version 1)
Quarter: 2017Q4

REPORT INFORMATION
  Report Type: Spontaneous
  Country: US (occurrence: US)
  Receive Date: 20171224
  Receipt Date: 20171224
  Transmission Date: 20180321
  Serious: No
  Sender: FDA-Public Use
  Company Number: PHEH2017US040944

PATIENT
  Age: 55 Year
  Sex: Female

DRUGS (1)
  1. VOTRIENT [Suspect]
     Active Substance: PAZOPANIB HYDROCHLORIDE
     Indication: CHLOROMA
     Dosage: 4 DF, QD
     Route: 048
     Dates: start: 20171122

REACTIONS (2)
  - Protein urine present [Unknown]
  - Hypertension [Unknown]

NARRATIVE: CASE EVENT DATE: 20171201
